FAERS Safety Report 5834255-3 (Version None)
Quarter: 2008Q3

REPORT INFORMATION
  Report Type: 
  Country: None (occurrence: None)
  Receive Date: 20080805
  Receipt Date: 20080728
  Transmission Date: 20090109
  Serious: Yes (Hospitalization)
  Sender: FDA-Public Use
  Company Number: PHHY2008DE16069

PATIENT
  Sex: Male

DRUGS (1)
  1. AREDIA [Suspect]
     Indication: MALIGNANT HISTIOCYTOSIS
     Dosage: 90 MG
     Route: 042
     Dates: start: 20080709, end: 20080709

REACTIONS (2)
  - BLOOD PARATHYROID HORMONE [None]
  - HYPOCALCAEMIA [None]
